FAERS Safety Report 23408794 (Version 1)
Quarter: 2024Q1

REPORT INFORMATION
  Report Type: Spontaneous
  Country: US (occurrence: None)
  Receive Date: 20240115
  Receipt Date: 20240115
  Transmission Date: 20240409
  Serious: No
  Sender: FDA-Public Use
  Company Number: None

PATIENT
  Age: 51 Year
  Sex: Male
  Weight: 69.75 kg

DRUGS (2)
  1. ESZOPICLONE [Suspect]
     Active Substance: ESZOPICLONE
     Indication: Insomnia
     Dosage: OTHER QUANTITY : 1 TABLET(S);?FREQUENCY : AS NEEDED;?
     Route: 048
     Dates: start: 20231109, end: 20231214
  2. MULTI-VITAMIN [Concomitant]
     Active Substance: .ALPHA.-TOCOPHEROL ACETATE, DL-\ASCORBIC ACID\CYANOCOBALAMIN\FLUORIDE ION\FOLIC ACID\NIACIN\PYRIDOXI

REACTIONS (12)
  - Psychomotor hyperactivity [None]
  - Middle insomnia [None]
  - Agitation [None]
  - Irritability [None]
  - Hostility [None]
  - Anger [None]
  - Frustration tolerance decreased [None]
  - Aphasia [None]
  - Fatigue [None]
  - Affective disorder [None]
  - Mental disorder [None]
  - Behaviour disorder [None]

NARRATIVE: CASE EVENT DATE: 20231215
